FAERS Safety Report 6380426-X (Version None)
Quarter: 2009Q3

REPORT INFORMATION
  Report Type: 
  Country: None (occurrence: None)
  Receive Date: 20090929
  Receipt Date: 20090917
  Transmission Date: 20100115
  Serious: Yes (Hospitalization)
  Sender: FDA-Public Use
  Company Number: PHEH2009US11128

PATIENT
  Sex: Female
  Weight: 97.506 kg

DRUGS (1)
  1. RECLAST [Suspect]
     Dosage: UNK
     Dates: start: 20090716, end: 20090716

REACTIONS (2)
  - BONE PAIN [None]
  - GASTROINTESTINAL HAEMORRHAGE [None]
